FAERS Safety Report 10442150 (Version 1)
Quarter: 2014Q3

REPORT INFORMATION
  Report Type: Spontaneous
  Country: US (occurrence: US)
  Receive Date: 20140909
  Receipt Date: 20140909
  Transmission Date: 20150326
  Serious: Yes (Other)
  Sender: FDA-Public Use
  Company Number: US-JNJFOC-20140904487

PATIENT
  Sex: Male

DRUGS (3)
  1. SOVALDI [Suspect]
     Active Substance: SOFOSBUVIR
     Indication: HEPATITIS C
     Route: 065
     Dates: start: 20140702
  2. OLYSIO [Suspect]
     Active Substance: SIMEPREVIR
     Indication: HEPATITIS C
     Route: 065
     Dates: start: 20140702
  3. RIBAVIRIN. [Concomitant]
     Active Substance: RIBAVIRIN
     Route: 065
     Dates: start: 20140702

REACTIONS (2)
  - Unevaluable event [Unknown]
  - Blood bilirubin abnormal [Unknown]
